FAERS Safety Report 5950377-0 (Version None)
Quarter: 2008Q4

REPORT INFORMATION
  Report Type: 
  Country: None (occurrence: None)
  Receive Date: 20081112
  Receipt Date: 20081106
  Transmission Date: 20090506
  Serious: Yes (Life-Threatening)
  Sender: FDA-Public Use
  Company Number: PHHY2008BR18531

PATIENT
  Age: 56 Year
  Sex: Female
  Weight: 75 kg

DRUGS (3)
  1. TEGRETOL [Suspect]
     Indication: DEPRESSION
     Dosage: 200 MG, QD
     Dates: start: 20080802
  2. RIVOTRIL [Concomitant]
     Indication: DEPRESSION
     Dosage: 2 MG, UNK
  3. RIVOTRIL [Concomitant]
     Indication: ANXIETY

REACTIONS (8)
  - ANXIETY [None]
  - APHASIA [None]
  - ASTHENIA [None]
  - DEAFNESS [None]
  - MIGRAINE [None]
  - OEDEMA PERIPHERAL [None]
  - PRESYNCOPE [None]
  - VISION BLURRED [None]
